FAERS Safety Report 17129441 (Version 1)
Quarter: 2019Q4

REPORT INFORMATION
  Report Type: Report from Study
  Country: ES (occurrence: ES)
  Receive Date: 20191209
  Receipt Date: 20191209
  Transmission Date: 20200122
  Serious: Yes (Other)
  Sender: FDA-Public Use
  Company Number: ES-MYLANLABS-2019M1119507

PATIENT
  Age: 78 Year
  Sex: Male

DRUGS (27)
  1. PREDNISONE. [Concomitant]
     Active Substance: PREDNISONE
     Dosage: 10 MG/24 HOURS
     Route: 065
     Dates: start: 201703, end: 201703
  2. ENALAPRIL/HYDROCHLOROTHIAZIDE [Concomitant]
     Active Substance: ENALAPRIL MALEATE\HYDROCHLOROTHIAZIDE
     Indication: PRODUCT USED FOR UNKNOWN INDICATION
     Dosage: 20/12.5 MG
     Route: 065
  3. OMEPRAZOLE. [Concomitant]
     Active Substance: OMEPRAZOLE
     Indication: ADJUVANT THERAPY
     Dosage: 20 MG/DAY
     Route: 065
     Dates: start: 201607
  4. IBUPROFEN. [Concomitant]
     Active Substance: IBUPROFEN
     Indication: ADJUVANT THERAPY
     Dosage: 600 MG, Q8H
     Route: 065
     Dates: start: 201607
  5. FENTANYL. [Suspect]
     Active Substance: FENTANYL
     Dosage: 50 MCG/72H
     Route: 062
     Dates: start: 201607, end: 201607
  6. FENTANYL. [Suspect]
     Active Substance: FENTANYL
     Dosage: 100 MICROGRAM
     Route: 062
     Dates: start: 201703, end: 201703
  7. DEXKETOPROFEN [Concomitant]
     Active Substance: DEXKETOPROFEN
     Indication: ADJUVANT THERAPY
     Dosage: 25 MG/H
     Route: 065
     Dates: start: 201703, end: 201806
  8. FENTANYL. [Suspect]
     Active Substance: FENTANYL
     Dosage: 75 MCG/72H
     Route: 062
     Dates: start: 201806
  9. PREGABALIN. [Concomitant]
     Active Substance: PREGABALIN
     Indication: PRODUCT USED FOR UNKNOWN INDICATION
     Dosage: 150 MG/12H
     Route: 065
     Dates: start: 201806, end: 201806
  10. ABIRATERONE. [Concomitant]
     Active Substance: ABIRATERONE ACETATE
     Indication: PRODUCT USED FOR UNKNOWN INDICATION
     Dosage: 1000 MG/DAY
     Route: 065
     Dates: start: 201703
  11. FENTANYL. [Suspect]
     Active Substance: FENTANYL
     Indication: PAIN
     Dosage: 125 MCG
     Route: 062
     Dates: start: 201806, end: 201806
  12. FENTANYL. [Suspect]
     Active Substance: FENTANYL
     Dosage: 25 MICROGRAM
     Route: 062
     Dates: start: 201607, end: 201703
  13. FENTANYL. [Suspect]
     Active Substance: FENTANYL
     Indication: BREAKTHROUGH PAIN
     Dosage: 800 UG
     Route: 060
     Dates: start: 201806, end: 201806
  14. FENTANYL. [Suspect]
     Active Substance: FENTANYL
     Indication: BREAKTHROUGH PAIN
     Dosage: 400 MICROGRAM
     Route: 045
     Dates: start: 201806, end: 201806
  15. ABSTRAL [Suspect]
     Active Substance: FENTANYL CITRATE
     Indication: BREAKTHROUGH PAIN
     Dosage: 100 MICROGRAM, 1 TO 3 RESCUES DAILY
     Route: 060
     Dates: start: 201607, end: 201703
  16. PREGABALIN. [Concomitant]
     Active Substance: PREGABALIN
     Dosage: 150 MG/12H
     Route: 065
     Dates: start: 201905, end: 201905
  17. ZOLEDRONIC ACID. [Concomitant]
     Active Substance: ZOLEDRONIC ACID
     Indication: PRODUCT USED FOR UNKNOWN INDICATION
     Dosage: 1 IN 4 WEEKS
     Route: 065
     Dates: start: 201703, end: 201905
  18. DOCETAXEL. [Concomitant]
     Active Substance: DOCETAXEL
     Indication: PRODUCT USED FOR UNKNOWN INDICATION
     Dosage: 75 MG/M2
     Route: 065
     Dates: start: 201806
  19. FENTANYL. [Suspect]
     Active Substance: FENTANYL
     Dosage: 400 UG, 2-3 TIMES/DAY
     Route: 060
     Dates: start: 201703, end: 201703
  20. FENTANYL. [Suspect]
     Active Substance: FENTANYL
     Dosage: 75 MCG/72H
     Route: 062
     Dates: start: 201703, end: 201806
  21. FENTANYL. [Suspect]
     Active Substance: FENTANYL
     Dosage: 400 UG, 1-2 TIMES/DAY
     Route: 060
     Dates: start: 201806
  22. PREDNISONE. [Concomitant]
     Active Substance: PREDNISONE
     Dosage: 10 MG/DAY
     Route: 065
     Dates: start: 201806, end: 201905
  23. DEXKETOPROFEN [Concomitant]
     Active Substance: DEXKETOPROFEN
     Dosage: 25 MILLIGRAM, Q8H
     Route: 065
     Dates: start: 201806
  24. FENTANYL. [Suspect]
     Active Substance: FENTANYL
     Dosage: 400 MICROGRAM, 1-2 DAILY
     Route: 060
     Dates: start: 201703, end: 201806
  25. PREGABALIN. [Concomitant]
     Active Substance: PREGABALIN
     Dosage: 75 MG, Q12H
     Route: 065
     Dates: start: 201806, end: 201905
  26. PREGABALIN. [Concomitant]
     Active Substance: PREGABALIN
     Dosage: 225 MG/12H
     Route: 065
     Dates: start: 201905
  27. PREDNISONE. [Concomitant]
     Active Substance: PREDNISONE
     Indication: PRODUCT USED FOR UNKNOWN INDICATION
     Dosage: 30 MG/DAY
     Route: 065
     Dates: start: 201905

REACTIONS (3)
  - Constipation [Recovered/Resolved]
  - Drug ineffective [Unknown]
  - Oropharyngeal candidiasis [Unknown]

NARRATIVE: CASE EVENT DATE: 201703
